FAERS Safety Report 9382402 (Version 2)
Quarter: 2013Q3

REPORT INFORMATION
  Report Type: Spontaneous
  Country: US (occurrence: US)
  Receive Date: 20130703
  Receipt Date: 20130729
  Transmission Date: 20140515
  Serious: Yes (Death)
  Sender: FDA-Public Use
  Company Number: US-GILEAD-2013-0078474

PATIENT
  Age: 56 Year
  Sex: Female

DRUGS (4)
  1. LETAIRIS [Suspect]
     Indication: PULMONARY ARTERIAL HYPERTENSION
     Dosage: 10 MG, QD
     Dates: start: 20120120, end: 20130603
  2. COUMADIN                           /00014802/ [Concomitant]
  3. GLEEVEC [Concomitant]
  4. REVATIO [Concomitant]

REACTIONS (1)
  - Cardio-respiratory arrest [Fatal]
